FAERS Safety Report 8905257 (Version 1)
Quarter: 2012Q4

REPORT INFORMATION
  Report Type: 
  Country: CA (occurrence: CA)
  Receive Date: 20121111
  Receipt Date: 20121111
  Transmission Date: 20130627
  Serious: Yes (Death, Hospitalization, Other)
  Sender: FDA-Public Use
  Company Number: PHHO2005CA05572

PATIENT
  Sex: Female

DRUGS (9)
  1. SANDOSTATIN LAR (PATIENT BASIS) [Suspect]
     Indication: VIPOMA
     Dosage: 30 mg, every three weeks
     Dates: start: 20041004, end: 20051206
  2. SANDOSTATIN LAR (PATIENT BASIS) [Suspect]
     Dosage: 30 mg, Q3WKS
  3. SANDOSTATIN [Suspect]
     Dosage: 100 MEq, UNK
     Route: 058
     Dates: start: 200501
  4. EFFEXOR [Concomitant]
  5. CALCIUM [Concomitant]
  6. DILANTIN [Concomitant]
  7. IMODIUM [Concomitant]
  8. VITAMIN D [Concomitant]
  9. LAMOTRIGINE [Concomitant]

REACTIONS (45)
  - Embolism [Fatal]
  - Myocardial infarction [Unknown]
  - Arthralgia [Unknown]
  - Hypersensitivity [Recovering/Resolving]
  - Erythema [Recovering/Resolving]
  - Face oedema [Recovering/Resolving]
  - Pruritus [Recovering/Resolving]
  - Dyspnoea [Recovering/Resolving]
  - Hypertension [Unknown]
  - Blood glucose increased [Unknown]
  - Diarrhoea [Unknown]
  - Abdominal pain [Unknown]
  - Flatulence [Unknown]
  - Oedema peripheral [Unknown]
  - Joint swelling [Unknown]
  - Fatigue [Unknown]
  - Bone pain [Unknown]
  - Oral herpes [Unknown]
  - Weight increased [Unknown]
  - Fall [Unknown]
  - Ecchymosis [Unknown]
  - Alopecia [Unknown]
  - Feeling cold [Unknown]
  - Chills [Unknown]
  - Anxiety [Unknown]
  - Nausea [Unknown]
  - Abdominal pain upper [Unknown]
  - Hot flush [Unknown]
  - Injection site reaction [Unknown]
  - Pain [Unknown]
  - Injection site induration [Unknown]
  - Skin irritation [Unknown]
  - Cough [Unknown]
  - Hyperglycaemia [Unknown]
  - Injection site pain [Unknown]
  - Headache [Unknown]
  - Dizziness [Unknown]
  - Insomnia [Unknown]
  - Dry mouth [Unknown]
  - Depression [Unknown]
  - Oedema [Unknown]
  - Scratch [Unknown]
  - Musculoskeletal chest pain [Unknown]
  - Hypoaesthesia [Unknown]
  - Contusion [Unknown]
